FAERS Safety Report 5161930-9 (Version None)
Quarter: 2006Q4

REPORT INFORMATION
  Report Type: 
  Country: None (occurrence: None)
  Receive Date: 20061130
  Receipt Date: 20061027
  Transmission Date: 20070319
  Serious: No
  Sender: FDA-Public Use
  Company Number: US-GLAXOSMITHKLINE-A0625189A

PATIENT

DRUGS (1)
  1. WELLBUTRIN XL [Suspect]
     Dosage: 150MG PER DAY
     Dates: start: 20061027

REACTIONS (1)
  - DRUG EXPOSURE VIA BREAST MILK [None]
